FAERS Safety Report 6661661-X (Version None)
Quarter: 2010Q1

REPORT INFORMATION
  Report Type: 
  Country: None (occurrence: None)
  Receive Date: 20100331
  Receipt Date: 20090427
  Transmission Date: 20100710
  Serious: Yes (Life-Threatening)
  Sender: FDA-Public Use
  Company Number: US-BRISTOL-MYERS SQUIBB COMPANY-14566434

PATIENT
  Age: 81 Year
  Sex: Female

DRUGS (5)
  1. ERBITUX [Suspect]
     Indication: HEAD AND NECK CANCER
     Dosage: RECEIVED 2ND DOSE
     Route: 042
     Dates: start: 20090326
  2. BENADRYL [Concomitant]
     Indication: PREMEDICATION
     Route: 042
  3. PEPCID [Concomitant]
     Indication: PREMEDICATION
     Route: 042
  4. SOLU-MEDROL [Concomitant]
     Indication: PREMEDICATION
     Route: 042
  5. ALBUTEROL [Concomitant]
     Indication: PREMEDICATION
     Dosage: 1 DF= 2 PUFFS

REACTIONS (1)
  - HYPERSENSITIVITY [None]
